FAERS Safety Report 5461969-X (Version None)
Quarter: 2007Q3

REPORT INFORMATION
  Report Type: 
  Country: None (occurrence: None)
  Receive Date: 20070920
  Receipt Date: 20070118
  Transmission Date: 20080115
  Serious: No
  Sender: FDA-Public Use
  Company Number: A0635960A

PATIENT
  Age: 21 Year
  Sex: Male

DRUGS (1)
  1. ABREVA [Suspect]
     Dates: start: 20070116, end: 20070116

REACTIONS (2)
  - APPLICATION SITE PARAESTHESIA [None]
  - LIP SWELLING [None]
